APPROVED DRUG PRODUCT: HYDROCODONE BITARTRATE AND ACETAMINOPHEN
Active Ingredient: ACETAMINOPHEN; HYDROCODONE BITARTRATE
Strength: 300MG;10MG
Dosage Form/Route: TABLET;ORAL
Application: A207709 | Product #003 | TE Code: AA
Applicant: AUROLIFE PHARMA LLC
Approved: Sep 13, 2018 | RLD: No | RS: No | Type: RX